FAERS Safety Report 5940712-1 (Version None)
Quarter: 2008Q4

REPORT INFORMATION
  Report Type: 
  Country: None (occurrence: None)
  Receive Date: 20081103
  Receipt Date: 20081103
  Transmission Date: 20090506
  Serious: Yes (Death)
  Sender: FDA-Public Use
  Company Number: None

PATIENT
  Sex: Female
  Weight: 8 kg

DRUGS (8)
  1. ALTEPLASE 1MG/1ML GENENTECH BRIAN YARBERRY PHARM.D. [Suspect]
     Indication: CATHETER RELATED COMPLICATION
     Dosage: 0.77 MG, Q 1 HR, IV
     Route: 042
     Dates: start: 20081022
  2. ALTEPLASE 2MG/1ML GENENTECH BRIAN YARBERRY PHARM.D. [Suspect]
     Indication: CATHETER RELATED COMPLICATION
     Dosage: 1.54 MG, ONCE, IV
     Route: 042
     Dates: start: 20081022
  3. FOSPHENYTOIN [Concomitant]
  4. MAGNESIUM SULFATE [Concomitant]
  5. COLACE [Concomitant]
  6. FAMOTIDINE [Concomitant]
  7. HEPARIN SODIUM [Concomitant]
  8. CEFOTAXIME SODIUM [Concomitant]

REACTIONS (7)
  - BRAIN ABSCESS [None]
  - BRAIN OEDEMA [None]
  - BRAIN STEM INFARCTION [None]
  - CEREBELLAR INFARCTION [None]
  - CEREBRAL INFARCTION [None]
  - MENINGITIS [None]
  - SUBDURAL EMPYEMA [None]
